FAERS Safety Report 23693576 (Version 1)
Quarter: 2024Q2

REPORT INFORMATION
  Report Type: Spontaneous
  Country: FR (occurrence: FR)
  Receive Date: 20240401
  Receipt Date: 20240401
  Transmission Date: 20240716
  Serious: Yes (Other)
  Sender: FDA-Public Use
  Company Number: None

PATIENT

DRUGS (8)
  1. XCOPRI [Suspect]
     Active Substance: CENOBAMATE
     Indication: Epileptic encephalopathy
     Dosage: GRADUALLY INCREASED DOSAGE (75 MG,1 IN 1 D)
     Route: 048
     Dates: start: 202310
  2. FYCOMPA [Suspect]
     Active Substance: PERAMPANEL
     Indication: Epileptic encephalopathy
     Dosage: 8 MG (8 MG,1 IN 1 D)
     Route: 065
     Dates: start: 202112
  3. ESOMEPRAZOLE [Suspect]
     Active Substance: ESOMEPRAZOLE
     Indication: Hyperchlorhydria
     Dosage: 20 MG (20 MG,1 IN 1 D)
     Route: 048
     Dates: start: 202307
  4. MELATONIN [Suspect]
     Active Substance: MELATONIN
     Indication: Epileptic encephalopathy
     Dosage: 10 MG (10 MG,1 IN 1 D)
     Route: 048
     Dates: start: 202205
  5. RIVOTRIL [Suspect]
     Active Substance: CLONAZEPAM
     Indication: Epileptic encephalopathy
     Dosage: 1 MG (1 MG,1 IN 1 D)
     Route: 048
     Dates: start: 202310
  6. VALPROIC ACID [Suspect]
     Active Substance: VALPROIC ACID
     Indication: Epileptic encephalopathy
     Dosage: 1000 MG (500 MG,1 IN 12 HR)
     Route: 048
     Dates: end: 202309
  7. VALPROIC ACID [Suspect]
     Active Substance: VALPROIC ACID
     Dosage: 1500 MG (750 MG,1 IN 12 HR)
     Route: 048
     Dates: start: 202310
  8. SOLU-MEDROL [Concomitant]
     Active Substance: METHYLPREDNISOLONE SODIUM SUCCINATE
     Indication: Epileptic encephalopathy
     Dosage: UNKN (1 IN 1 M)
     Route: 042

REACTIONS (2)
  - Off label use [Unknown]
  - Neutropenia [Unknown]

NARRATIVE: CASE EVENT DATE: 20231001
